FAERS Safety Report 4649535-7 (Version None)
Quarter: 2005Q2

REPORT INFORMATION
  Report Type: 
  Country: None (occurrence: None)
  Receive Date: 20050427
  Receipt Date: 20050413
  Transmission Date: 20051028
  Serious: No
  Sender: FDA-Public Use
  Company Number: A04200500339

PATIENT
  Sex: Female

DRUGS (1)
  1. ELOXATIN [Suspect]
     Dosage: INTRAVENOUS DRIP
     Route: 041
     Dates: start: 20050101, end: 20050101

REACTIONS (2)
  - ANAPHYLACTIC SHOCK [None]
  - CARDIAC ARREST [None]
